FAERS Safety Report 6063253-2 (Version None)
Quarter: 2009Q1

REPORT INFORMATION
  Report Type: 
  Country: None (occurrence: None)
  Receive Date: 20090203
  Receipt Date: 20090119
  Transmission Date: 20090719
  Serious: Yes (Hospitalization)
  Sender: FDA-Public Use
  Company Number: FR-ROCHE-611825

PATIENT
  Sex: Male

DRUGS (9)
  1. CELLCEPT [Suspect]
     Indication: DRUG USE FOR UNKNOWN INDICATION
     Route: 048
     Dates: start: 20080909
  2. FORTUM [Suspect]
     Indication: DRUG USE FOR UNKNOWN INDICATION
     Dosage: DOSAGE REGIMEN: 2G/50 ML
     Route: 042
     Dates: start: 20080910, end: 20080915
  3. PROGRAF [Suspect]
     Indication: DRUG USE FOR UNKNOWN INDICATION
     Dosage: DOSAGE REGIMEN: 2 MG PER 12
     Route: 048
     Dates: start: 20080909, end: 20080913
  4. PROGRAF [Suspect]
     Route: 048
     Dates: start: 20080917
  5. VFEND [Suspect]
     Indication: DRUG USE FOR UNKNOWN INDICATION
     Dosage: DOSAGE REGIMEN: 200 MG, 1 IN
     Route: 048
     Dates: start: 20080910, end: 20080915
  6. NEXIUM [Concomitant]
     Dosage: GASTRO-RESISTANT
     Dates: start: 20080909, end: 20080910
  7. OGASTRO [Concomitant]
     Dates: start: 20080910, end: 20080919
  8. GENTAMICIN [Concomitant]
     Dates: end: 20080913
  9. ZYVOXID [Concomitant]
     Route: 042
     Dates: start: 20080910, end: 20080917

REACTIONS (1)
  - TOXIC ENCEPHALOPATHY [None]
